FAERS Safety Report 7379012-4 (Version None)
Quarter: 2011Q1

REPORT INFORMATION
  Report Type: 
  Country: None (occurrence: None)
  Receive Date: 20110328
  Receipt Date: 20110318
  Transmission Date: 20110831
  Serious: Yes (Life-Threatening, Other)
  Sender: FDA-Public Use
  Company Number: CA-GENZYME-THYM-1002313

PATIENT

DRUGS (14)
  1. THYMOGLOBULIN [Suspect]
     Dosage: 290 MG, UNK
     Route: 042
     Dates: start: 20101208, end: 20101208
  2. THYMOGLOBULIN [Suspect]
     Indication: PROPHYLAXIS AGAINST GRAFT VERSUS HOST DISEASE
     Dosage: 73 MG, UNK
     Route: 042
     Dates: start: 20101207, end: 20101207
  3. MORPHINE [Suspect]
     Indication: PAIN MANAGEMENT
     Route: 042
  4. MAGNESIUM [Concomitant]
     Indication: SUPPLEMENTATION THERAPY
  5. HEPARIN SODIUM [Concomitant]
     Indication: ANTICOAGULANT THERAPY
  6. PIPERACILLIN AND TAZOBACTAM [Concomitant]
     Indication: ANTIBIOTIC PROPHYLAXIS
  7. METHOTREXATE [Concomitant]
     Indication: PROPHYLAXIS AGAINST GRAFT VERSUS HOST DISEASE
  8. VALACICLOVIR [Concomitant]
     Indication: ANTIVIRAL TREATMENT
  9. RANITIDINE [Concomitant]
     Indication: GASTROINTESTINAL DISORDER
  10. INSULIN [Concomitant]
     Indication: BLOOD GLUCOSE ABNORMAL
  11. METOPROLOL SUCCINATE [Concomitant]
     Indication: HYPERTENSION
  12. LASIX [Concomitant]
     Indication: DIURETIC THERAPY
  13. ATIVAN [Concomitant]
     Indication: SEDATION
  14. CYCLOSPORINE [Concomitant]
     Indication: PROPHYLAXIS AGAINST GRAFT VERSUS HOST DISEASE

REACTIONS (4)
  - PANCYTOPENIA [None]
  - CYTOKINE RELEASE SYNDROME [None]
  - FEBRILE NEUTROPENIA [None]
  - ACUTE RESPIRATORY DISTRESS SYNDROME [None]
